FAERS Safety Report 9233986 (Version 2)
Quarter: 2013Q3

REPORT INFORMATION
  Report Type: Spontaneous
  Country: US (occurrence: US)
  Receive Date: 20130416
  Receipt Date: 20130704
  Transmission Date: 20140515
  Serious: No
  Sender: FDA-Public Use
  Company Number: US-PFIZER INC-2013115985

PATIENT
  Age: 72 Year
  Sex: Female

DRUGS (5)
  1. ETODOLAC [Suspect]
     Dosage: UNK
  2. CYMBALTA [Suspect]
     Dosage: UNK
  3. IBUPROFEN [Concomitant]
     Dosage: UNK
  4. ASPRIN [Concomitant]
     Dosage: UNK
  5. TYLENOL [Concomitant]
     Dosage: UNK

REACTIONS (3)
  - Abdominal pain upper [Unknown]
  - Gastrointestinal pain [Unknown]
  - Drug hypersensitivity [Unknown]
